FAERS Safety Report 7418125-5 (Version None)
Quarter: 2011Q2

REPORT INFORMATION
  Report Type: 
  Country: None (occurrence: None)
  Receive Date: 20110415
  Receipt Date: 20110401
  Transmission Date: 20111010
  Serious: Yes (Death, Other)
  Sender: FDA-Public Use
  Company Number: BR-WATSON-2011-05112

PATIENT
  Age: 60 Year
  Sex: Male

DRUGS (4)
  1. METHOTREXATE [Suspect]
     Indication: RHEUMATOID ARTHRITIS
     Dosage: 15 MG, 1/WEEK
  2. ADALIMUMAB [Suspect]
     Indication: RHEUMATOID ARTHRITIS
     Dosage: 40 MG EVERY 15 DAYS
     Route: 058
  3. LEFLUNOMIDE [Suspect]
     Indication: RHEUMATOID ARTHRITIS
     Dosage: 20 MG, DAILY
  4. HYDROCORTISONE ACETATE [Suspect]
     Indication: RHEUMATOID ARTHRITIS
     Dosage: 25 MG, DAILY

REACTIONS (6)
  - AMPUTATION [None]
  - CONDITION AGGRAVATED [None]
  - SEPSIS [None]
  - BONE SARCOMA [None]
  - PARACOCCIDIOIDES INFECTION [None]
  - DRUG INEFFECTIVE [None]
